FAERS Safety Report 9734892 (Version 1)
Quarter: 2013Q4

REPORT INFORMATION
  Report Type: Spontaneous
  Country: CH (occurrence: CH)
  Receive Date: 20131206
  Receipt Date: 20131206
  Transmission Date: 20140711
  Serious: Yes (Hospitalization)
  Sender: FDA-Public Use
  Company Number: CH-ROCHE-1314910

PATIENT
  Age: 72 Year
  Sex: Male
  Weight: 80 kg

DRUGS (9)
  1. MABTHERA [Suspect]
     Indication: MYASTHENIA GRAVIS
     Route: 041
     Dates: start: 20130919
  2. MABTHERA [Suspect]
     Route: 041
     Dates: start: 20131008
  3. AZATHIOPRIN [Suspect]
     Indication: MYASTHENIA GRAVIS
     Dosage: DOSED 100 TO 150 MG
     Route: 048
     Dates: start: 201108, end: 20130918
  4. MESTINON [Concomitant]
     Route: 048
     Dates: start: 20080615
  5. SPIRICORT [Concomitant]
     Route: 048
     Dates: start: 20080815
  6. ESOMEPRAZOLE [Concomitant]
     Route: 065
     Dates: start: 20080815
  7. TORASEMID [Concomitant]
     Route: 065
     Dates: start: 20111001
  8. MARCOUMAR [Concomitant]
     Route: 048
     Dates: start: 20110826
  9. PERINDOPRIL [Concomitant]
     Route: 048
     Dates: start: 20080615

REACTIONS (4)
  - Nephrolithiasis [Recovering/Resolving]
  - Flank pain [Recovering/Resolving]
  - Haematuria [Recovering/Resolving]
  - Pancytopenia [Recovering/Resolving]
